FAERS Safety Report 8171253-1 (Version None)
Quarter: 2012Q1

REPORT INFORMATION
  Report Type: 
  Country: None (occurrence: None)
  Receive Date: 20120228
  Receipt Date: 20120222
  Transmission Date: 20120608
  Serious: Yes (Other)
  Sender: FDA-Public Use
  Company Number: GB-PFIZER INC-2012032518

PATIENT
  Age: 80 Year
  Sex: Male

DRUGS (8)
  1. TAMSULOSIN [Concomitant]
     Dosage: 400 UG, 1X/DAY
     Route: 048
  2. FINASTERIDE [Concomitant]
     Dosage: 5 MG, 1X/DAY
     Route: 048
  3. LEVOTHYROXINE [Concomitant]
     Dosage: 25 UG, 1X/DAY
     Dates: start: 20120125
  4. WARFARIN [Concomitant]
     Dosage: AS PER INR
  5. RAMIPRIL [Suspect]
     Indication: HYPERTENSION
     Dosage: 1.25 MG, 1X/DAY
     Route: 048
     Dates: start: 20120124
  6. ISOPROPYL MYRISTATE AND PARAFFIN, LIQUID [Concomitant]
     Dosage: UNK
  7. LAMOTRIGINE [Suspect]
     Indication: EPILEPSY
     Dosage: 25 MG, 1X/DAY
  8. LATANOPROST [Concomitant]
     Indication: GLAUCOMA
     Dosage: UNK
     Route: 047

REACTIONS (3)
  - HAEMOGLOBIN DECREASED [None]
  - WHITE BLOOD CELL COUNT DECREASED [None]
  - MYELODYSPLASTIC SYNDROME [None]
